FAERS Safety Report 21157128 (Version 3)
Quarter: 2022Q4

REPORT INFORMATION
  Report Type: Spontaneous
  Country: US (occurrence: US)
  Receive Date: 20220801
  Receipt Date: 20221118
  Transmission Date: 20230113
  Serious: No
  Sender: FDA-Public Use
  Company Number: US-PFIZER INC-PV202200033211

PATIENT
  Age: 56 Year
  Sex: Male

DRUGS (1)
  1. XELJANZ XR [Suspect]
     Active Substance: TOFACITINIB CITRATE
     Dosage: UNK

REACTIONS (7)
  - Product dose omission issue [Unknown]
  - Insomnia [Unknown]
  - Peripheral swelling [Unknown]
  - Pain in extremity [Unknown]
  - Swelling [Unknown]
  - Pain [Unknown]
  - Impaired work ability [Unknown]
